FAERS Safety Report 19011404 (Version 5)
Quarter: 2021Q4

REPORT INFORMATION
  Report Type: Report from Study
  Country: SI (occurrence: None)
  Receive Date: 20210315
  Receipt Date: 20211222
  Transmission Date: 20220303
  Serious: Yes (Hospitalization)
  Sender: FDA-Public Use
  Company Number: SI-ROCHE-2786937

PATIENT
  Age: 22 Year
  Sex: Female
  Weight: 70 kg

DRUGS (24)
  1. OCRELIZUMAB [Suspect]
     Active Substance: OCRELIZUMAB
     Indication: Relapsing-remitting multiple sclerosis
     Dosage: DATE OF MOST RECENT DOSE OF OCRELIZUMAB PRIOR TO THIS EVENT ONSET: 01/SEP/2020?TWO 300-MILLIGRAM (MG
     Route: 042
     Dates: start: 20171120
  2. METHYLPREDNISOLONE [Suspect]
     Active Substance: METHYLPREDNISOLONE
     Indication: Premedication
     Dosage: DATE OF MOST RECENT DOSE OF METHYLPREDNISOLONE PRIOR TO THIS EVENT ONSET: 01/SEP/2020 (100 MG)?NEXT
     Route: 042
     Dates: start: 20171120
  3. CLEMASTINE [Concomitant]
     Active Substance: CLEMASTINE
     Indication: Premedication
     Dosage: 2 OTHER
     Route: 042
     Dates: start: 20171120, end: 20171120
  4. CLEMASTINE [Concomitant]
     Active Substance: CLEMASTINE
     Dosage: NEXT DOSE ON 07/MAY/2018, 05/NOV/2018, 18/APR/2019, 02/OCT/2019, 10/MAR/2020
     Route: 042
     Dates: start: 20171204, end: 20171204
  5. CLEMASTINE FUMARATE [Concomitant]
     Active Substance: CLEMASTINE FUMARATE
     Indication: Premedication
     Route: 042
     Dates: start: 20200901, end: 20200901
  6. CLEMASTINE FUMARATE [Concomitant]
     Active Substance: CLEMASTINE FUMARATE
     Indication: Premedication
     Route: 042
     Dates: start: 20210216, end: 20210216
  7. ACETAMINOPHEN [Concomitant]
     Active Substance: ACETAMINOPHEN
     Indication: Premedication
     Dosage: NEXT DOSE ON 05/NOV/2018, 18/APR/2019, 02/OCT/2019, 10/MAR/2020
     Route: 048
     Dates: start: 20210216, end: 20210216
  8. ACETAMINOPHEN [Concomitant]
     Active Substance: ACETAMINOPHEN
     Route: 048
     Dates: start: 20181226, end: 20190102
  9. ACETAMINOPHEN [Concomitant]
     Active Substance: ACETAMINOPHEN
     Route: 048
  10. KYLEENA [Concomitant]
     Active Substance: LEVONORGESTREL
  11. ACETAMINOPHEN\ASCORBIC ACID [Concomitant]
     Active Substance: ACETAMINOPHEN\ASCORBIC ACID
     Route: 048
  12. ACETAMINOPHEN\ASCORBIC ACID [Concomitant]
     Active Substance: ACETAMINOPHEN\ASCORBIC ACID
     Route: 048
     Dates: start: 20190324, end: 20190328
  13. ACETAMINOPHEN\ASCORBIC ACID [Concomitant]
     Active Substance: ACETAMINOPHEN\ASCORBIC ACID
     Route: 048
     Dates: start: 20190616, end: 20190617
  14. ACETAMINOPHEN\ASCORBIC ACID [Concomitant]
     Active Substance: ACETAMINOPHEN\ASCORBIC ACID
     Route: 048
     Dates: start: 20191215, end: 20191217
  15. ACETAMINOPHEN\ASCORBIC ACID [Concomitant]
     Active Substance: ACETAMINOPHEN\ASCORBIC ACID
     Route: 048
     Dates: start: 20200206, end: 20200209
  16. ACETAMINOPHEN\ASCORBIC ACID [Concomitant]
     Active Substance: ACETAMINOPHEN\ASCORBIC ACID
     Route: 048
     Dates: start: 20191116, end: 20191119
  17. ACETAMINOPHEN\ASCORBIC ACID [Concomitant]
     Active Substance: ACETAMINOPHEN\ASCORBIC ACID
     Route: 048
     Dates: start: 20210505, end: 20210506
  18. ACETAMINOPHEN\ASCORBIC ACID [Concomitant]
     Active Substance: ACETAMINOPHEN\ASCORBIC ACID
     Route: 048
     Dates: start: 20210526, end: 20210527
  19. VENTOLIN [Concomitant]
     Active Substance: ALBUTEROL SULFATE
     Dates: start: 20200207, end: 20200210
  20. VENTOLIN [Concomitant]
     Active Substance: ALBUTEROL SULFATE
  21. DROSPIRENONE\ETHINYL ESTRADIOL [Concomitant]
     Active Substance: DROSPIRENONE\ETHINYL ESTRADIOL
     Dosage: 0.03 MG/3 MG
     Route: 048
  22. COMIRNATY [Concomitant]
     Active Substance: TOZINAMERAN
     Route: 030
     Dates: start: 20210505, end: 20210505
  23. COMIRNATY [Concomitant]
     Active Substance: TOZINAMERAN
     Route: 030
     Dates: start: 20210526, end: 20210526
  24. NADROPARIN CALCIUM [Concomitant]
     Active Substance: NADROPARIN CALCIUM
     Route: 058
     Dates: start: 20210213, end: 20210327

REACTIONS (1)
  - COVID-19 [Recovered/Resolved]

NARRATIVE: CASE EVENT DATE: 20201021
